FAERS Safety Report 12920857 (Version 3)
Quarter: 2017Q1

REPORT INFORMATION
  Report Type: Report from Study
  Country: ES (occurrence: ES)
  Receive Date: 20161107
  Receipt Date: 20170215
  Transmission Date: 20170428
  Serious: Yes (Hospitalization, Other)
  Sender: FDA-Public Use
  Company Number: ES-PFIZER INC-2015094756

PATIENT
  Age: 78 Year
  Sex: Female

DRUGS (31)
  1. METAMIZOLE [Concomitant]
     Active Substance: METAMIZOLE
     Indication: ANALGESIC THERAPY
     Dosage: 575 MG, 3X/DAY
     Route: 048
     Dates: start: 20150308
  2. ALLOPURINOL. [Concomitant]
     Active Substance: ALLOPURINOL
     Dosage: 300 MG, 1X/DAY
     Dates: start: 20150226, end: 20150302
  3. METHYLPREDNISOLONE. [Concomitant]
     Active Substance: METHYLPREDNISOLONE
     Dosage: 10 MG, 1X/DAY
     Route: 042
     Dates: start: 20150226, end: 20150302
  4. SEPTRIN [Concomitant]
     Active Substance: SULFAMETHOXAZOLE\TRIMETHOPRIM
     Dosage: 960 MG, 3X/WEEK (MONDAYS, WENDESDAYS AND FRIDAYS)
     Dates: start: 20150302, end: 20150312
  5. METOCLOPRAMIDE. [Concomitant]
     Active Substance: METOCLOPRAMIDE
     Indication: MALAISE
     Dosage: 10 MG, 3X/DAY
     Route: 042
     Dates: start: 20150226, end: 20150302
  6. AMOXICILLIN AND CLAVULANATE POTASSIUM [Concomitant]
     Active Substance: AMOXICILLIN\CLAVULANATE POTASSIUM
     Indication: ANTIBIOTIC THERAPY
     Dosage: 1000 MG, 3X/DAY
     Route: 048
     Dates: start: 20150312
  7. CODEINE [Concomitant]
     Active Substance: CODEINE
     Indication: ANTITUSSIVE THERAPY
     Dosage: 10 MG/5 ML, 3X/DAY
     Route: 048
     Dates: start: 20150308
  8. MEGESTROL ACETATE. [Concomitant]
     Active Substance: MEGESTROL ACETATE
     Dosage: 160 MG, 3X/DAY
     Route: 048
     Dates: start: 20150226, end: 20150302
  9. SALMETEROL/FLUTICASONE [Concomitant]
     Active Substance: FLUTICASONE PROPIONATE\SALMETEROL XINAFOATE
     Dosage: 2 DF, 2X/DAY
     Route: 055
     Dates: start: 20150302, end: 20150312
  10. CHLORHEXIDINE [Concomitant]
     Active Substance: CHLORHEXIDINE
     Dosage: UNK UNK, 3X/DAY
     Route: 061
     Dates: start: 20150302, end: 20150312
  11. PARACETAMOL [Concomitant]
     Active Substance: ACETAMINOPHEN
     Dosage: 1000MG  3X/DAY IF PAIN
     Route: 042
     Dates: start: 20150302, end: 20150312
  12. METOCLOPRAMIDE. [Concomitant]
     Active Substance: METOCLOPRAMIDE
     Indication: NAUSEA
     Dosage: 10 MG, AS NEEDED
     Dates: start: 20150302, end: 20150312
  13. ACENOCOUMAROL [Concomitant]
     Active Substance: ACENOCOUMAROL
     Indication: ANTICOAGULANT THERAPY
     Dosage: 4 MG, 1X/DAY
     Route: 048
     Dates: start: 20150227
  14. OMEPRAZOL [Concomitant]
     Active Substance: OMEPRAZOLE
     Indication: GASTRITIS PROPHYLAXIS
     Dosage: 20 MG, 1X/DAY
     Route: 048
     Dates: start: 20150227
  15. TORASEMIDE [Concomitant]
     Active Substance: TORSEMIDE
     Indication: DIURETIC THERAPY
     Dosage: 10 MG, 1X/DAY
     Route: 048
     Dates: start: 20150227
  16. DIGOXIN. [Concomitant]
     Active Substance: DIGOXIN
     Indication: ARRHYTHMIA
     Dosage: 0.125 MG, 1X/DAY
     Route: 048
     Dates: start: 20150226, end: 20150302
  17. FUROSEMIDE. [Concomitant]
     Active Substance: FUROSEMIDE
     Indication: DIURETIC THERAPY
     Dosage: 40 MG, 1X/DAY
     Route: 048
     Dates: start: 20150226, end: 20150302
  18. PF-04449913 [Suspect]
     Active Substance: GLASDEGIB
     Indication: ACUTE MYELOID LEUKAEMIA
     Dosage: ONCE DAILY CONTINUOUS
     Route: 048
     Dates: start: 20150220, end: 20150317
  19. RAMIPRIL. [Concomitant]
     Active Substance: RAMIPRIL
     Indication: HYPERTENSION
     Dosage: 5 MG, DAILY
     Route: 048
     Dates: start: 20150226, end: 20150302
  20. PARACETAMOL [Concomitant]
     Active Substance: ACETAMINOPHEN
     Indication: ANALGESIC THERAPY
     Dosage: 1000 MG, AS NEEDED
     Route: 042
     Dates: start: 20150226, end: 20150302
  21. CEFTRIAXONE. [Concomitant]
     Active Substance: CEFTRIAXONE
     Indication: ANTIBIOTIC THERAPY
     Dosage: 2000 MG, 1X/DAY
     Route: 042
     Dates: start: 20150312
  22. ATROVENT [Concomitant]
     Active Substance: IPRATROPIUM BROMIDE
     Dosage: 2 DF, 3X/DAY
     Route: 055
     Dates: start: 20150302, end: 20150312
  23. CYTARABINE. [Suspect]
     Active Substance: CYTARABINE
     Indication: ACUTE MYELOID LEUKAEMIA
     Dosage: AT MORNING AND EVENING; 12 HRS APPART) ON DAYS 1-10 OF EACH 28-DAY CYCLE
     Route: 058
     Dates: start: 20150220, end: 20150301
  24. SULFAMETHOXAZOLE/TRIMETHOPRIM [Suspect]
     Active Substance: SULFAMETHOXAZOLE\TRIMETHOPRIM
     Indication: ANTIBIOTIC THERAPY
     Dosage: 960 MG (800/160), 3X/WEEK (MONDAYS, WENDESDAYS AND FRIDAYS)
     Route: 048
     Dates: start: 20150218, end: 20150318
  25. DIAZEPAM. [Concomitant]
     Active Substance: DIAZEPAM
     Indication: INSOMNIA
     Dosage: 10 MG, 1X/DAY
     Route: 048
     Dates: start: 20150226, end: 20150302
  26. DIAZEPAM. [Concomitant]
     Active Substance: DIAZEPAM
     Dosage: 5 MG, 1X/DAY IF NEEDED
     Dates: start: 20150302, end: 20150312
  27. METOCLOPRAMIDE. [Concomitant]
     Active Substance: METOCLOPRAMIDE
     Indication: VOMITING
  28. FORMODUAL [Concomitant]
     Indication: ASTHMA
     Dosage: 100/6 MCG, 2X/DAY
     Route: 055
     Dates: start: 20150226, end: 20150302
  29. IPRATROPIUM BROMIDE. [Concomitant]
     Active Substance: IPRATROPIUM BROMIDE
     Indication: ANTASTHMATIC DRUG LEVEL
     Dosage: 40 UG, 3X/DAY, 20 UG PUFF/INHALED DOSE
     Route: 055
     Dates: start: 20150226, end: 20150302
  30. ACETYLCYSTEINE. [Concomitant]
     Active Substance: ACETYLCYSTEINE
     Dosage: 200 MG, 3X/DAY
     Route: 048
     Dates: start: 20150226, end: 20150302
  31. OMEPRAZOL [Concomitant]
     Active Substance: OMEPRAZOLE
     Dosage: 20 MG, 1X/DAY
     Dates: start: 20150302, end: 20150312

REACTIONS (3)
  - Bronchopulmonary aspergillosis [Recovered/Resolved]
  - Skin toxicity [Recovered/Resolved]
  - Febrile neutropenia [Recovered/Resolved]

NARRATIVE: CASE EVENT DATE: 20150312
